FAERS Safety Report 10206401 (Version 1)
Quarter: 2014Q2

REPORT INFORMATION
  Report Type: Spontaneous
  Country: US (occurrence: US)
  Receive Date: 20140530
  Receipt Date: 20140530
  Transmission Date: 20141212
  Serious: No
  Sender: FDA-Public Use
  Company Number: US-BAYER-2014-080467

PATIENT
  Age: 31 Year
  Sex: Male

DRUGS (2)
  1. MAGNEVIST [Suspect]
     Indication: NUCLEAR MAGNETIC RESONANCE IMAGING BRAIN
     Dosage: 15 ML, ONCE
     Dates: start: 20140415, end: 20140415
  2. MAGNEVIST [Suspect]
     Indication: PITUITARY TUMOUR BENIGN

REACTIONS (2)
  - Urticaria [None]
  - Throat irritation [None]
